FAERS Safety Report 15403382 (Version 1)
Quarter: 2018Q3

REPORT INFORMATION
  Report Type: Other
  Country: DE (occurrence: DE)
  Receive Date: 20180919
  Receipt Date: 20180919
  Transmission Date: 20181010
  Serious: Yes (Other)
  Sender: FDA-Public Use
  Company Number: DE-MACLEODS PHARMACEUTICALS US LTD-MAC2018016572

PATIENT

DRUGS (6)
  1. MOTILIUM [Suspect]
     Active Substance: DOMPERIDONE
     Indication: PRODUCT USED FOR UNKNOWN INDICATION
     Dosage: UNK
     Route: 065
  2. PANTOPRAZOLE [Suspect]
     Active Substance: PANTOPRAZOLE
     Indication: PRODUCT USED FOR UNKNOWN INDICATION
     Dosage: UNK
     Route: 065
  3. TURMERIC [Suspect]
     Active Substance: HERBALS\TURMERIC
     Indication: PRODUCT USED FOR UNKNOWN INDICATION
     Dosage: UNK, 1 TSP, QD
     Route: 065
  4. CLARITHROMYCIN 500 MG [Suspect]
     Active Substance: CLARITHROMYCIN
     Indication: HELICOBACTER INFECTION
     Dosage: 500 MILLIGRAM
     Route: 065
  5. TASIGNA [Interacting]
     Active Substance: NILOTINIB
     Indication: PRODUCT USED FOR UNKNOWN INDICATION
     Dosage: 400 MILLIGRAM, BID, (200?0?200 MG)
     Route: 048
     Dates: start: 201605
  6. TASIGNA [Interacting]
     Active Substance: NILOTINIB
     Indication: CHRONIC MYELOID LEUKAEMIA
     Dosage: 600 MILLIGRAM, QD, (2X200 MG IN THE MORNING, 200 MG IN THE EVENING)
     Route: 048
     Dates: start: 201402

REACTIONS (11)
  - Helicobacter infection [Not Recovered/Not Resolved]
  - Musculoskeletal chest pain [Unknown]
  - Drug interaction [Unknown]
  - Arthralgia [Unknown]
  - Burning sensation [Unknown]
  - Gait disturbance [Unknown]
  - Sleep disorder [Unknown]
  - Gastric ulcer [Unknown]
  - Abdominal pain upper [Unknown]
  - Gastritis [Unknown]
  - Dyspepsia [Not Recovered/Not Resolved]

NARRATIVE: CASE EVENT DATE: 2015
